FAERS Safety Report 4609403-3 (Version None)
Quarter: 2005Q2

REPORT INFORMATION
  Report Type: 
  Country: None (occurrence: None)
  Receive Date: 20050225
  Receipt Date: 20041117
  Transmission Date: 20051028
  Serious: No
  Sender: FDA-Public Use
  Company Number: 2004US002290

PATIENT
  Age: 33 Year
  Sex: Female
  Weight: 102 kg

DRUGS (8)
  1. ALOXI [Suspect]
     Indication: PROPHYLAXIS OF NAUSEA AND VOMITING
     Dosage: 0.25 MG, SINGLE, INTRAVENOUS
     Route: 042
     Dates: start: 20051115, end: 20041115
  2. CPT-11 (IRINOTECAN) [Concomitant]
  3. TEMODAR [Concomitant]
  4. ZESTRIL [Concomitant]
  5. PROZAC [Concomitant]
  6. DILANTIN (PHENYTONIE SODIUM) [Concomitant]
  7. PLAVIX [Concomitant]
  8. TAMOXIFEN (TAMOXIFEN) [Concomitant]

REACTIONS (3)
  - DRUG INEFFECTIVE [None]
  - NAUSEA [None]
  - VOMITING [None]
